FAERS Safety Report 26179028 (Version 1)
Quarter: 2025Q4

REPORT INFORMATION
  Report Type: Report from Study
  Country: CA (occurrence: CA)
  Receive Date: 20251219
  Receipt Date: 20251219
  Transmission Date: 20260117
  Serious: Yes (Hospitalization, Other)
  Sender: CELLTRION
  Company Number: CA-CELLTRION INC.-2025CA023203

PATIENT

DRUGS (4)
  1. INFLIXIMAB-DYYB [Suspect]
     Active Substance: INFLIXIMAB-DYYB
     Indication: Rheumatoid arthritis
     Dosage: MAINTENANCE - 300 MG - IV  (INTRAVENOUS) EVERY 8 WEEKS
     Route: 042
     Dates: start: 20250709
  2. INFLIXIMAB-DYYB [Suspect]
     Active Substance: INFLIXIMAB-DYYB
     Dosage: NEW- MAINTENANCE - 300  MG - IV (INTRAVENOUS) EVERY 6 WEEKS
     Route: 042
     Dates: start: 20251029
  3. INFLIXIMAB-DYYB [Suspect]
     Active Substance: INFLIXIMAB-DYYB
     Dosage: NEW- MAINTENANCE - 300  MG - IV (INTRAVENOUS) EVERY 6 WEEKS
     Route: 042
     Dates: start: 20251126
  4. PREDNISONE [Concomitant]
     Active Substance: PREDNISONE
     Indication: Product used for unknown indication
     Dosage: 30MG ONCE DAILY THEN REDUCED TO 20MG ONCE DAILY
     Route: 048
     Dates: start: 2025

REACTIONS (6)
  - Stenosis [Recovering/Resolving]
  - Pain in jaw [Recovering/Resolving]
  - Chest discomfort [Recovering/Resolving]
  - Condition aggravated [Unknown]
  - Intentional product use issue [Unknown]
  - Off label use [Unknown]

NARRATIVE: CASE EVENT DATE: 20250101
